FAERS Safety Report 6336089-2 (Version None)
Quarter: 2009Q3

REPORT INFORMATION
  Report Type: 
  Country: None (occurrence: None)
  Receive Date: 20090828
  Receipt Date: 20090824
  Transmission Date: 20100115
  Serious: Yes (Death)
  Sender: FDA-Public Use
  Company Number: ENTC2009-0288

PATIENT
  Age: 73 Year
  Sex: Male

DRUGS (1)
  1. STALEVO 100 [Suspect]
     Dosage: 150 MG 4 TABLETS DAILY
     Dates: start: 20090101

REACTIONS (1)
  - DEATH [None]
